FAERS Safety Report 24062077 (Version 1)
Quarter: 2024Q3

REPORT INFORMATION
  Report Type: Spontaneous
  Country: US (occurrence: None)
  Receive Date: 20240707
  Receipt Date: 20240707
  Transmission Date: 20241016
  Serious: Yes (Hospitalization, Disabling)
  Sender: Public
  Company Number: None

PATIENT
  Age: 60 Year
  Sex: Female
  Weight: 53.55 kg

DRUGS (4)
  1. EMGALITY [Suspect]
     Active Substance: GALCANEZUMAB-GNLM
     Indication: Migraine
     Dosage: OTHER QUANTITY : 1 INJECTION(S);?OTHER FREQUENCY : 1/ MONTH;?
     Route: 058
     Dates: start: 20231215, end: 20231215
  2. LISINOPRIL [Concomitant]
     Active Substance: LISINOPRIL
  3. ALLEGRA [Concomitant]
     Active Substance: FEXOFENADINE HYDROCHLORIDE
  4. BIOTIN [Concomitant]
     Active Substance: BIOTIN

REACTIONS (2)
  - Constipation [None]
  - Large intestinal obstruction [None]

NARRATIVE: CASE EVENT DATE: 20231225
